FAERS Safety Report 24574498 (Version 1)
Quarter: 2024Q4

REPORT INFORMATION
  Report Type: Spontaneous
  Country: US (occurrence: US)
  Receive Date: 20241104
  Receipt Date: 20241104
  Transmission Date: 20250115
  Serious: Yes (Hospitalization, Other)
  Sender: GLAXOSMITHKLINE
  Company Number: US-GSK-US2024GSK132229

PATIENT

DRUGS (5)
  1. LAMOTRIGINE [Interacting]
     Active Substance: LAMOTRIGINE
     Indication: Affective disorder
     Dosage: UNK
  2. LAMOTRIGINE [Interacting]
     Active Substance: LAMOTRIGINE
     Dosage: 100 MG, QD (DOSE INCREASED)
  3. AMOXICILLIN [Interacting]
     Active Substance: AMOXICILLIN
     Indication: Tonsillitis
     Dosage: 3 DF
  4. ARIPIPRAZOLE [Concomitant]
     Active Substance: ARIPIPRAZOLE
     Indication: Affective disorder
     Dosage: 2 MG, QD
  5. DULOXETINE [Concomitant]
     Active Substance: DULOXETINE
     Indication: Affective disorder
     Dosage: 30 MG, QD

REACTIONS (20)
  - Drug reaction with eosinophilia and systemic symptoms [Recovered/Resolved]
  - Pyrexia [Recovered/Resolved]
  - Nausea [Recovered/Resolved]
  - Vomiting [Recovered/Resolved]
  - Abdominal pain [Recovered/Resolved]
  - Rash maculo-papular [Recovered/Resolved]
  - Rash macular [Recovered/Resolved]
  - Rash erythematous [Recovered/Resolved]
  - Condition aggravated [Recovered/Resolved]
  - Dyspnoea [Recovered/Resolved]
  - Rash [Recovered/Resolved]
  - Lymphadenopathy [Recovered/Resolved]
  - Hypotension [Recovered/Resolved]
  - Inflammation [Recovered/Resolved]
  - Skin discolouration [Recovered/Resolved]
  - Hepatitis [Recovered/Resolved]
  - Oedema [Recovered/Resolved]
  - Hepatic necrosis [Recovered/Resolved]
  - Biliary obstruction [Recovered/Resolved]
  - Drug interaction [Recovered/Resolved]
